FAERS Safety Report 5163528-5 (Version None)
Quarter: 2006Q4

REPORT INFORMATION
  Report Type: 
  Country: None (occurrence: None)
  Receive Date: 20061124
  Receipt Date: 20061113
  Transmission Date: 20070319
  Serious: Yes (Hospitalization, Other)
  Sender: FDA-Public Use
  Company Number: 2006141180

PATIENT
  Age: 71 Year
  Sex: Female

DRUGS (10)
  1. LIPITOR [Suspect]
     Indication: BLOOD CHOLESTEROL INCREASED
     Dosage: 10 MG
     Dates: start: 19980101
  2. PHENYTOIN [Suspect]
     Indication: CONVULSION
     Dosage: 300 MG (2 IN 1 D)
     Dates: start: 20061107
  3. PRILOSEC [Suspect]
     Indication: GASTRIC ULCER
     Dates: start: 19980101, end: 19980101
  4. NEURONTIN [Concomitant]
  5. SERTRALINE HYDROCHLORIDE [Concomitant]
  6. AMITRIPTYLINE HCL [Concomitant]
  7. ALBUTEROL [Concomitant]
  8. MIACALCIN [Concomitant]
  9. VITAMIN CAP [Concomitant]
  10. CALCIUM [Concomitant]

REACTIONS (15)
  - ABNORMAL FAECES [None]
  - BURNING SENSATION [None]
  - CHOLECYSTECTOMY [None]
  - CONTUSION [None]
  - CONVULSION [None]
  - DRUG INEFFECTIVE [None]
  - GASTRIC ULCER [None]
  - GASTRITIS HAEMORRHAGIC [None]
  - LIMB DISCOMFORT [None]
  - MASS [None]
  - MULTIPLE ALLERGIES [None]
  - NAUSEA [None]
  - NEUROPATHY PERIPHERAL [None]
  - SENSORY DISTURBANCE [None]
  - WEIGHT INCREASED [None]
